FAERS Safety Report 8911629 (Version 1)
Quarter: 2012Q4

REPORT INFORMATION
  Report Type: 
  Country: US (occurrence: US)
  Receive Date: 20121116
  Receipt Date: 20121116
  Transmission Date: 20130627
  Serious: Yes (Hospitalization)
  Sender: FDA-Public Use
  Company Number: US-BAYER-2012-118459

PATIENT
  Age: 39 Year
  Sex: Female
  Weight: 53.06 kg

DRUGS (8)
  1. YAZ [Suspect]
  2. NAPROXEN [Concomitant]
     Dosage: 550 mg, PRN
     Dates: start: 20070110
  3. NITROFURANTOIN [Concomitant]
     Dosage: 100 mg, UNK
     Dates: start: 20070120
  4. NEXIUM [Concomitant]
     Dosage: 20 mg, BID
     Dates: start: 20070126
  5. AZITHROMYCIN [Concomitant]
     Dosage: 250 mg, UNK
     Dates: start: 20070207
  6. METHYLPREDNISOLONE [Concomitant]
     Dosage: 4 mg, UNK
     Dates: start: 20070207
  7. PROAIR HFA [Concomitant]
     Dosage: UNK
     Dates: start: 20070207
  8. ULTRACET [Concomitant]
     Indication: PAIN
     Dosage: 1 UNK, every 6 hours [as needed]
     Route: 048

REACTIONS (1)
  - Pulmonary embolism [None]
